FAERS Safety Report 9952318 (Version 1)
Quarter: 2014Q1

REPORT INFORMATION
  Report Type: Report from Study
  Country: US (occurrence: US)
  Receive Date: 20140304
  Receipt Date: 20140304
  Transmission Date: 20141002
  Serious: No
  Sender: FDA-Public Use
  Company Number: US-ABBVIE-13P-163-1079349-00

PATIENT
  Age: 57 Year
  Sex: Male

DRUGS (5)
  1. HUMIRA [Suspect]
     Indication: PSORIASIS
     Route: 058
  2. HUMIRA [Suspect]
     Route: 058
  3. MEDICATION [Concomitant]
     Indication: DIABETES MELLITUS
  4. MEDICATION [Concomitant]
     Indication: HYPERTENSION
  5. MEDICATION [Concomitant]
     Indication: BLOOD CHOLESTEROL

REACTIONS (2)
  - Psoriasis [Not Recovered/Not Resolved]
  - Upper respiratory tract infection [Recovered/Resolved]
